FAERS Safety Report 25684693 (Version 1)
Quarter: 2025Q3

REPORT INFORMATION
  Report Type: Spontaneous
  Country: EU (occurrence: EU)
  Receive Date: 20250815
  Receipt Date: 20250815
  Transmission Date: 20251021
  Serious: Yes (Congenital Anomaly, Other)
  Sender: AUROBINDO
  Company Number: EU-AFSSAPS-TO2025001211

PATIENT
  Age: 19 Week

DRUGS (2)
  1. ARIPIPRAZOLE [Suspect]
     Active Substance: ARIPIPRAZOLE
     Indication: Schizophrenia
     Dosage: 15 MILLIGRAM, ONCE A DAY
     Route: 065
     Dates: start: 20250113
  2. SERTRALINE [Suspect]
     Active Substance: SERTRALINE HYDROCHLORIDE
     Indication: Schizophrenia
     Dosage: 100 MILLIGRAM, ONCE A DAY
     Route: 065
     Dates: start: 20250113

REACTIONS (1)
  - Talipes [Not Recovered/Not Resolved]

NARRATIVE: CASE EVENT DATE: 20250507
